FAERS Safety Report 9925669 (Version 2)
Quarter: 2014Q2

REPORT INFORMATION
  Report Type: Spontaneous
  Country: US (occurrence: US)
  Receive Date: 20140226
  Receipt Date: 20140403
  Transmission Date: 20141212
  Serious: No
  Sender: FDA-Public Use
  Company Number: US-B.I. PHARMACEUTICALS,INC./RIDGEFIELD-2014-BI-07417BP

PATIENT
  Sex: Male
  Weight: 82 kg

DRUGS (13)
  1. COMBIVENT [Suspect]
     Indication: HYPERSENSITIVITY
     Dosage: STRENGTH: 20 MCG / 100 MCG; DAILY DOSE: 80 MCG/400 MCG
     Route: 055
     Dates: start: 201310
  2. COMBIVENT [Suspect]
     Indication: ASTHMA
  3. FLOVENT [Concomitant]
     Dosage: 2 PUF
     Route: 055
  4. LISINOPRIL [Concomitant]
     Indication: HYPERTENSION
     Dosage: 10 MG
     Route: 048
  5. AMIODARONE [Concomitant]
     Indication: HYPERTENSION
     Dosage: 100 MG
     Route: 048
  6. ASPIRIN [Concomitant]
     Dosage: 81 MG
     Route: 048
  7. FUROSEMIDE [Concomitant]
     Indication: CARDIAC FAILURE CONGESTIVE
     Dosage: 40 MG
     Route: 048
  8. GLUCOSAMINE [Concomitant]
     Indication: ARTHRALGIA
     Dosage: STRENGTH: 1500/1200 MG; DAILY DOSE: 3000/2400 MG
     Route: 048
  9. METOPROLOL [Concomitant]
     Indication: HYPERTENSION
     Dosage: 25 MG
     Route: 048
  10. NITROGLYCERIN [Concomitant]
     Indication: CHEST PAIN
     Route: 050
  11. TAMSULOSIN [Concomitant]
     Dosage: 0.4 MG
     Route: 048
  12. WARFARIN [Concomitant]
     Indication: CARDIAC FAILURE CONGESTIVE
     Dosage: THREE DAYS A WEEK; THEN TAKES 4 MG DAILY FOR 4 DAYS.
     Route: 048
  13. WARFARIN [Concomitant]
     Route: 048

REACTIONS (3)
  - Intraocular pressure increased [Not Recovered/Not Resolved]
  - Off label use [Unknown]
  - Product quality issue [Unknown]
